FAERS Safety Report 10158932 (Version 1)
Quarter: 2014Q2

REPORT INFORMATION
  Report Type: Spontaneous
  Country: US (occurrence: US)
  Receive Date: 20140508
  Receipt Date: 20140508
  Transmission Date: 20141212
  Serious: No
  Sender: FDA-Public Use
  Company Number: US-BIOGENIDEC-2014BI039565

PATIENT
  Age: 43 Year
  Sex: Female

DRUGS (5)
  1. TECFIDERA [Suspect]
     Indication: MULTIPLE SCLEROSIS
     Route: 048
     Dates: start: 20131101, end: 20131107
  2. TECFIDERA [Suspect]
     Indication: MULTIPLE SCLEROSIS
     Route: 048
     Dates: start: 20131108
  3. LYRICA [Concomitant]
     Route: 048
  4. OXYBUTYNIN [Concomitant]
     Route: 048
  5. SERTRALINE [Concomitant]
     Route: 048

REACTIONS (2)
  - Flatulence [Recovered/Resolved]
  - Small intestinal bacterial overgrowth [Not Recovered/Not Resolved]
